FAERS Safety Report 23080952 (Version 1)
Quarter: 2023Q4

REPORT INFORMATION
  Report Type: Spontaneous
  Country: US (occurrence: None)
  Receive Date: 20231018
  Receipt Date: 20231018
  Transmission Date: 20240109
  Serious: Yes (Hospitalization)
  Sender: FDA-Public Use
  Company Number: None

PATIENT
  Age: 51 Year
  Sex: Male
  Weight: 125 kg

DRUGS (1)
  1. OXALIPLATIN [Suspect]
     Active Substance: OXALIPLATIN
     Dosage: FREQUENCY : ONCE;?
     Route: 042
     Dates: start: 20220429, end: 20220429

REACTIONS (6)
  - Hypotension [None]
  - Infusion related reaction [None]
  - Paraesthesia oral [None]
  - Pruritus [None]
  - Hyperhidrosis [None]
  - Anaphylactic reaction [None]

NARRATIVE: CASE EVENT DATE: 20220429
